FAERS Safety Report 5833179-5 (Version None)
Quarter: 2008Q3

REPORT INFORMATION
  Report Type: 
  Country: None (occurrence: None)
  Receive Date: 20080805
  Receipt Date: 20080725
  Transmission Date: 20090109
  Serious: Yes (Other)
  Sender: FDA-Public Use
  Company Number: US-JNJFOC-20080601569

PATIENT
  Sex: Male
  Weight: 87.54 kg

DRUGS (13)
  1. REMICADE [Suspect]
     Route: 042
  2. REMICADE [Suspect]
     Route: 042
  3. REMICADE [Suspect]
     Route: 042
  4. REMICADE [Suspect]
     Indication: CROHN'S DISEASE
     Route: 042
  5. AZATHIOPRINE [Suspect]
     Indication: CROHN'S DISEASE
  6. BUDESONIDE [Suspect]
     Indication: CROHN'S DISEASE
  7. ANTIBIOTICS [Concomitant]
     Indication: CROHN'S DISEASE
  8. ANTIHISTAMINES [Concomitant]
  9. ANTIHISTAMINES [Concomitant]
  10. ANTIHISTAMINES [Concomitant]
  11. ANTIHISTAMINES [Concomitant]
     Indication: PREMEDICATION
  12. ACETAMINOPHEN [Concomitant]
  13. ACETAMINOPHEN [Concomitant]
     Indication: PREMEDICATION

REACTIONS (1)
  - PULMONARY TUBERCULOSIS [None]
